FAERS Safety Report 22656883 (Version 2)
Quarter: 2023Q2

REPORT INFORMATION
  Report Type: Spontaneous
  Country: US (occurrence: US)
  Receive Date: 20230630
  Receipt Date: 20230630
  Transmission Date: 20230721
  Serious: No
  Sender: FDA-Public Use
  Company Number: US-JNJFOC-20230660555

PATIENT
  Age: 81 Year
  Sex: Female

DRUGS (2)
  1. XARELTO [Interacting]
     Active Substance: RIVAROXABAN
     Indication: Pulmonary thrombosis
     Route: 048
     Dates: start: 2017
  2. XARELTO [Interacting]
     Active Substance: RIVAROXABAN
     Route: 048

REACTIONS (3)
  - Hypoaesthesia [Unknown]
  - Product label issue [Unknown]
  - Drug interaction [Unknown]
